FAERS Safety Report 8457495-6 (Version None)
Quarter: 2012Q2

REPORT INFORMATION
  Report Type: 
  Country: None (occurrence: None)
  Receive Date: 20120622
  Receipt Date: 20120612
  Transmission Date: 20120825
  Serious: Yes (Hospitalization)
  Sender: FDA-Public Use
  Company Number: JP-ABBOTT-12P-087-0945217-00

PATIENT
  Sex: Female
  Weight: 32.6 kg

DRUGS (8)
  1. HUMIRA [Suspect]
     Dates: start: 20110328, end: 20110328
  2. ELENTAL [Concomitant]
     Indication: CROHN'S DISEASE
     Route: 048
     Dates: start: 20070409
  3. MOSAPRIDE CITRATE HYDRATE [Concomitant]
     Indication: GASTROOESOPHAGEAL REFLUX DISEASE
     Route: 048
     Dates: start: 20101119
  4. HUMIRA [Suspect]
     Dates: start: 20110411
  5. MESALAMINE [Concomitant]
     Indication: CROHN'S DISEASE
     Route: 048
     Dates: start: 20070327
  6. RACOL [Concomitant]
     Indication: CROHN'S DISEASE
     Route: 048
     Dates: start: 20090209
  7. CAMOSTAT MESILATE [Concomitant]
     Indication: GASTROOESOPHAGEAL REFLUX DISEASE
     Route: 048
     Dates: start: 20070316
  8. HUMIRA [Suspect]
     Indication: CROHN'S DISEASE
     Route: 058
     Dates: start: 20110314, end: 20110314

REACTIONS (3)
  - GASTROINTESTINAL STENOSIS [None]
  - ANASTOMOTIC STENOSIS [None]
  - VOMITING [None]
